FAERS Safety Report 15461326 (Version 6)
Quarter: 2020Q3

REPORT INFORMATION
  Report Type: Report from Study
  Country: JP (occurrence: JP)
  Receive Date: 20181003
  Receipt Date: 20190312
  Transmission Date: 20201104
  Serious: Yes (Life-Threatening, Hospitalization)
  Sender: FDA-Public Use
  Company Number: JP-BAYER-2018-180965

PATIENT
  Age: 71 Year
  Sex: Female
  Weight: 64.1 kg

DRUGS (28)
  1. NEOMALLERMIN TR [Concomitant]
     Indication: PROPHYLAXIS
     Dosage: 6 MG, QD
     Route: 048
     Dates: start: 20180926, end: 20180926
  2. PROPOFOL. [Concomitant]
     Active Substance: PROPOFOL
     Dosage: 3 ML, QD
     Route: 042
     Dates: start: 20180928, end: 20180928
  3. MIYA?BM [Concomitant]
     Active Substance: CLOSTRIDIUM BUTYRICUM SPORES STRAIN M-55
     Dosage: DAILY DOSE 1 G
     Dates: start: 20180928, end: 20180928
  4. CRAVIT [Concomitant]
     Active Substance: LEVOFLOXACIN
     Dosage: 500 MG, QD
     Dates: start: 20181022
  5. FENTANYL. [Concomitant]
     Active Substance: FENTANYL
     Indication: SURGERY
     Dosage: 5 ML, QD
     Route: 042
     Dates: start: 20180926, end: 20180927
  6. CEFTRIAXONE SODIUM. [Concomitant]
     Active Substance: CEFTRIAXONE SODIUM
     Dosage: DAILY DOSE 2 G
     Dates: start: 20180928, end: 20181016
  7. AMITIZA [Concomitant]
     Active Substance: LUBIPROSTONE
     Dosage: DAILY DOSE 24 ?G
     Dates: start: 20181005
  8. COPANLISIB. [Suspect]
     Active Substance: COPANLISIB
     Indication: B-CELL LYMPHOMA RECURRENT
     Dosage: 60 MG, QD
     Route: 041
     Dates: start: 20180926, end: 20180926
  9. RITUXIMAB. [Suspect]
     Active Substance: RITUXIMAB
     Dosage: UNK
  10. PROPOFOL. [Concomitant]
     Active Substance: PROPOFOL
     Dosage: 3 ML, QD
     Route: 042
     Dates: start: 20181003, end: 20181003
  11. BFLUID [Concomitant]
     Active Substance: AMINO ACIDS\DEXTROSE\ELECTROLYTES NOS\VITAMINS
     Dosage: 1000 ML, QD
     Route: 042
     Dates: start: 20181023, end: 20181025
  12. COPANLISIB. [Suspect]
     Active Substance: COPANLISIB
     Indication: B-CELL LYMPHOMA RECURRENT
     Dosage: 60 MG, QD
     Route: 041
     Dates: start: 20180919, end: 20180919
  13. CALONAL [Concomitant]
     Active Substance: ACETAMINOPHEN
     Indication: PROPHYLAXIS
     Dosage: 400 MG, QD
     Route: 048
     Dates: start: 20180926, end: 20180926
  14. CEFTRIAXONE SODIUM. [Concomitant]
     Active Substance: CEFTRIAXONE SODIUM
     Dosage: DAILY DOSE 2 G
     Route: 042
     Dates: start: 20180927, end: 20180927
  15. MAGNESIUM OXIDE. [Concomitant]
     Active Substance: MAGNESIUM OXIDE
     Dosage: DAILY DOSE .33 G
     Dates: start: 20181004, end: 20181004
  16. AZULENE SODIUM SULFONATE [Concomitant]
     Active Substance: SODIUM DECAHYDROAZULENE-1-SULFONATE
     Dosage: UNK UNK, PRN
     Route: 061
     Dates: start: 20181001
  17. AMITIZA [Concomitant]
     Active Substance: LUBIPROSTONE
     Dosage: 24 ?G, QD
     Dates: start: 20181003, end: 20181003
  18. AMITIZA [Concomitant]
     Active Substance: LUBIPROSTONE
     Dosage: DAILY DOSE 24 ?G
     Dates: start: 20181004, end: 20181004
  19. SODIUM PICOSULFATE [Concomitant]
     Active Substance: SODIUM PICOSULFATE
     Dosage: DAILY DOSE 15 DF
     Dates: start: 20181003
  20. MIYA?BM [Concomitant]
     Active Substance: CLOSTRIDIUM BUTYRICUM SPORES STRAIN M-55
     Dosage: DAILY DOSE 1 G
     Dates: start: 20180929
  21. SOLDEM 3A [Concomitant]
     Active Substance: CARBOHYDRATES\POTASSIUM CHLORIDE\SODIUM CHLORIDE\SODIUM LACTATE
     Indication: SURGERY
     Dosage: 500 ML, QD
     Route: 042
     Dates: start: 20180927, end: 20180927
  22. SOLDEM 3A [Concomitant]
     Active Substance: CARBOHYDRATES\POTASSIUM CHLORIDE\SODIUM CHLORIDE\SODIUM LACTATE
     Indication: SURGERY
     Dosage: 500 ML, QD
     Route: 042
     Dates: start: 20180929, end: 20181003
  23. SOLDEM 3A [Concomitant]
     Active Substance: CARBOHYDRATES\POTASSIUM CHLORIDE\SODIUM CHLORIDE\SODIUM LACTATE
     Indication: SURGERY
     Dosage: 500 ML, QD
     Route: 048
     Dates: start: 20181013, end: 20181013
  24. MAGNESIUM OXIDE. [Concomitant]
     Active Substance: MAGNESIUM OXIDE
     Dosage: DAILY DOSE .33 G
     Dates: start: 20180929, end: 20181003
  25. FENTANYL. [Concomitant]
     Active Substance: FENTANYL
     Indication: SURGERY
     Dosage: 2 ML, QD
     Route: 042
     Dates: start: 20181003, end: 20181003
  26. GASTER [FAMOTIDINE] [Concomitant]
     Dosage: 20 MG, QD
     Route: 042
     Dates: start: 20180927, end: 20180927
  27. MAGNESIUM OXIDE. [Concomitant]
     Active Substance: MAGNESIUM OXIDE
     Dosage: DAILY DOSE .33 G
     Dates: start: 20180928, end: 20180928
  28. MAGNESIUM OXIDE. [Concomitant]
     Active Substance: MAGNESIUM OXIDE
     Dosage: DAILY DOSE .33 G
     Dates: start: 20181005

REACTIONS (2)
  - Cerebral haemorrhage [Not Recovered/Not Resolved]
  - Sepsis [Recovered/Resolved]

NARRATIVE: CASE EVENT DATE: 20180926
